FAERS Safety Report 7806512 (Version 6)
Quarter: 2013Q4

REPORT INFORMATION
  Report Type: Spontaneous
  Country: AR (occurrence: AR)
  Receive Date: 20110210
  Receipt Date: 20131211
  Transmission Date: 20140711
  Serious: Yes (Hospitalization, Other)
  Sender: FDA-Public Use
  Company Number: AR-AMGEN-ARGSP2011007175

PATIENT
  Age: 58 Year
  Sex: Female
  Weight: 80 kg

DRUGS (6)
  1. ENBREL [Suspect]
     Indication: RHEUMATOID ARTHRITIS
     Dosage: 50 MG, WEEKLY
     Route: 058
     Dates: start: 20061031
  2. ENBREL [Suspect]
     Dosage: 50 MG, WEEKLY
     Route: 058
     Dates: start: 201010, end: 201012
  3. ENBREL [Suspect]
     Dosage: 50 MG, WEEKLY
     Route: 058
     Dates: start: 20110401
  4. RANITIDINE [Concomitant]
     Dosage: UNK
     Dates: start: 2007, end: 201009
  5. PANTOPRAZOLE [Concomitant]
     Dosage: UNK
     Route: 048
     Dates: start: 2007
  6. AMLODIPINE [Concomitant]
     Dosage: UNK
     Route: 048
     Dates: end: 201009

REACTIONS (10)
  - Renal failure [Recovered/Resolved]
  - Gastritis [Recovered/Resolved]
  - Dehydration [Recovered/Resolved]
  - Liver scan abnormal [Unknown]
  - Renal neoplasm [Recovered/Resolved]
  - Decreased immune responsiveness [Recovering/Resolving]
  - Liver function test abnormal [Unknown]
  - Nervousness [Not Recovered/Not Resolved]
  - Urinary tract infection [Unknown]
  - Erysipelas [Recovering/Resolving]
